FAERS Safety Report 8362318-X (Version None)
Quarter: 2012Q2

REPORT INFORMATION
  Report Type: 
  Country: None (occurrence: None)
  Receive Date: 20120515
  Receipt Date: 20120509
  Transmission Date: 20120825
  Serious: Yes (Congenital Anomaly, Other)
  Sender: FDA-Public Use
  Company Number: US-AMGEN-USASP2011042499

PATIENT
  Sex: Female
  Weight: 75.737 kg

DRUGS (9)
  1. ENBREL [Suspect]
     Dosage: 50 MG, QWK
     Route: 064
     Dates: start: 19980101
  2. MULTI-VITAMINS [Concomitant]
     Dosage: UNK
     Route: 064
  3. TYLENOL (CAPLET) [Concomitant]
  4. ENBREL [Suspect]
     Dosage: 50 MG, QWK
     Route: 058
     Dates: start: 20070101
  5. MEDROL [Concomitant]
     Dosage: UNK
     Route: 064
  6. ENBREL [Suspect]
     Dosage: 50 MG, QWK
     Route: 058
     Dates: start: 20070101
  7. ENBREL [Suspect]
     Dosage: 50 MG, QWK
     Route: 064
     Dates: start: 19980101
  8. VICODIN [Concomitant]
     Dosage: UNK UNK, PRN
     Route: 064
  9. MOTRIN [Concomitant]
     Dosage: UNK

REACTIONS (7)
  - CONGENITAL ANOMALY [None]
  - DOUBLE OUTLET RIGHT VENTRICLE [None]
  - PERICARDIAL EFFUSION [None]
  - VENTRICULAR SEPTAL DEFECT [None]
  - PROCEDURAL COMPLICATION [None]
  - HEART DISEASE CONGENITAL [None]
  - PULMONARY VALVE STENOSIS [None]
